FAERS Safety Report 7358117-8 (Version None)
Quarter: 2011Q1

REPORT INFORMATION
  Report Type: 
  Country: None (occurrence: None)
  Receive Date: 20110317
  Receipt Date: 20110307
  Transmission Date: 20110831
  Serious: Yes (Other)
  Sender: FDA-Public Use
  Company Number: CA-JNJFOC-20110303984

PATIENT
  Sex: Female
  Weight: 57.6 kg

DRUGS (6)
  1. SOLU-CORTEF [Concomitant]
     Indication: PREMEDICATION
     Route: 042
  2. REMICADE [Suspect]
     Route: 042
  3. VENLAFAXINE [Concomitant]
     Indication: DEPRESSION
     Route: 048
  4. REMICADE [Suspect]
     Indication: CROHN'S DISEASE
     Route: 042
  5. REMICADE [Suspect]
     Route: 042
  6. BENADRYL [Concomitant]
     Indication: PREMEDICATION
     Route: 042

REACTIONS (5)
  - BACK PAIN [None]
  - FLUSHING [None]
  - DYSPNOEA [None]
  - INFUSION RELATED REACTION [None]
  - ADVERSE EVENT [None]
